FAERS Safety Report 13981994 (Version 2)
Quarter: 2017Q4

REPORT INFORMATION
  Report Type: Report from Study
  Country: US (occurrence: US)
  Receive Date: 20170918
  Receipt Date: 20171027
  Transmission Date: 20180321
  Serious: Yes (Hospitalization)
  Sender: FDA-Public Use
  Company Number: US-TESARO, INC-US-2017TSO01818

PATIENT

DRUGS (1)
  1. ZEJULA [Suspect]
     Active Substance: NIRAPARIB
     Indication: METASTASES TO OVARY
     Dosage: 300 MG, QD
     Route: 048
     Dates: start: 20170623

REACTIONS (3)
  - Blood count abnormal [Unknown]
  - Hospice care [Unknown]
  - Fatigue [Unknown]
